FAERS Safety Report 17959715 (Version 4)
Quarter: 2020Q4

REPORT INFORMATION
  Report Type: Spontaneous
  Country: JP (occurrence: JP)
  Receive Date: 20200629
  Receipt Date: 20201020
  Transmission Date: 20210113
  Serious: Yes (Other)
  Sender: FDA-Public Use
  Company Number: JP-OTSUKA-2020_015342

PATIENT
  Age: 6 Decade
  Sex: Female

DRUGS (1)
  1. SAMSCA [Suspect]
     Active Substance: TOLVAPTAN
     Indication: CONGENITAL CYSTIC KIDNEY DISEASE
     Dosage: 60 MG/DAY, FREQUENCY UNKNOWN
     Route: 048
     Dates: start: 202001, end: 20200508

REACTIONS (2)
  - Hepatic function abnormal [Recovered/Resolved]
  - Hepatic atrophy [Unknown]

NARRATIVE: CASE EVENT DATE: 20200508
